FAERS Safety Report 15450876 (Version 1)
Quarter: 2018Q4

REPORT INFORMATION
  Report Type: Spontaneous
  Country: GB (occurrence: GB)
  Receive Date: 20181001
  Receipt Date: 20181001
  Transmission Date: 20190204
  Serious: Yes (Other)
  Sender: FDA-Public Use
  Company Number: GB-TORRENT-00018063

PATIENT
  Age: 68 Year
  Sex: Male
  Weight: 82 kg

DRUGS (1)
  1. SILDENAFIL CITRATE. [Suspect]
     Active Substance: SILDENAFIL CITRATE
     Indication: ERECTILE DYSFUNCTION
     Dosage: UNK
     Route: 048
     Dates: start: 20160901

REACTIONS (4)
  - Flushing [Recovered/Resolved]
  - Dizziness postural [Recovered/Resolved]
  - Blood urine present [Recovered/Resolved]
  - Gastrooesophageal reflux disease [Recovered/Resolved with Sequelae]
